FAERS Safety Report 5266308-5 (Version None)
Quarter: 2007Q1

REPORT INFORMATION
  Report Type: 
  Country: None (occurrence: None)
  Receive Date: 20070315
  Receipt Date: 20070306
  Transmission Date: 20070707
  Serious: Yes (Hospitalization)
  Sender: FDA-Public Use
  Company Number: AU-ROCHE-485899

PATIENT
  Age: 43 Year
  Sex: Female

DRUGS (5)
  1. ZENAPAX [Suspect]
     Route: 042
  2. PROGRAF [Suspect]
     Route: 048
     Dates: start: 20040414
  3. RAMIPRIL [Concomitant]
     Dates: start: 20040925
  4. SIMVASTATIN [Concomitant]
     Dates: start: 20010615
  5. PREDNISONE [Concomitant]
     Dates: start: 20041009

REACTIONS (8)
  - BACK PAIN [None]
  - CHILLS [None]
  - HYPERHIDROSIS [None]
  - MALAISE [None]
  - NAUSEA [None]
  - POLLAKIURIA [None]
  - PYELONEPHRITIS [None]
  - VOMITING [None]
